FAERS Safety Report 21549373 (Version 1)
Quarter: 2022Q4

REPORT INFORMATION
  Report Type: Spontaneous
  Country: US (occurrence: None)
  Receive Date: 20221102
  Receipt Date: 20221102
  Transmission Date: 20230112
  Serious: Yes (unspecified)
  Sender: FDA-Public Use
  Company Number: None

PATIENT
  Age: 41 Year
  Sex: Male
  Weight: 60.75 kg

DRUGS (3)
  1. SERTRALINE [Suspect]
     Active Substance: SERTRALINE HYDROCHLORIDE
     Indication: Anxiety
     Dates: start: 20220314
  2. SERTRALINE [Suspect]
     Active Substance: SERTRALINE HYDROCHLORIDE
     Indication: Depression
  3. METHYLPHENIDATE [Concomitant]
     Active Substance: METHYLPHENIDATE

REACTIONS (8)
  - Abnormal behaviour [None]
  - Impulsive behaviour [None]
  - Suicidal ideation [None]
  - Suicide attempt [None]
  - Anger [None]
  - Obsessive thoughts [None]
  - Memory impairment [None]
  - Hallucination [None]

NARRATIVE: CASE EVENT DATE: 20220911
